FAERS Safety Report 5533488-3 (Version None)
Quarter: 2007Q4

REPORT INFORMATION
  Report Type: 
  Country: None (occurrence: None)
  Receive Date: 20071204
  Receipt Date: 20071122
  Transmission Date: 20080405
  Serious: Yes (Hospitalization)
  Sender: FDA-Public Use
  Company Number: AT-PFIZER INC-2007098479

PATIENT
  Age: 77 Year
  Sex: Female
  Weight: 50 kg

DRUGS (2)
  1. ZITHROMAX [Suspect]
     Indication: BRONCHITIS CHRONIC
     Route: 048
     Dates: start: 20071008, end: 20071009
  2. ZITHROMAX [Suspect]
     Indication: PYREXIA

REACTIONS (4)
  - DEMENTIA [None]
  - DISORIENTATION [None]
  - HYPOKINESIA [None]
  - ILL-DEFINED DISORDER [None]
